FAERS Safety Report 7522771-8 (Version None)
Quarter: 2011Q2

REPORT INFORMATION
  Report Type: 
  Country: None (occurrence: None)
  Receive Date: 20110603
  Receipt Date: 20110521
  Transmission Date: 20111010
  Serious: Yes (Other)
  Sender: FDA-Public Use
  Company Number: CA-JNJFOC-20110511437

PATIENT
  Sex: Female
  Weight: 72 kg

DRUGS (17)
  1. REMICADE [Suspect]
     Indication: PRODUCT USED FOR UNKNOWN INDICATION
     Route: 042
     Dates: start: 20110521
  2. TRAZODONE HCL [Concomitant]
  3. CARVEDILOL [Concomitant]
  4. INSULIN [Concomitant]
  5. SEROQUEL [Concomitant]
  6. SYNTHROID [Concomitant]
  7. NOVO-SPIROTON [Concomitant]
  8. PROZAC [Concomitant]
  9. ATIVAN [Concomitant]
     Indication: ANXIETY
     Route: 048
  10. GRAVOL TAB [Concomitant]
     Indication: NAUSEA
     Route: 042
  11. METHADONE HCL [Concomitant]
  12. RAMIPRIL [Concomitant]
  13. LASIX [Concomitant]
  14. NEXIUM [Concomitant]
  15. PREDNISONE [Concomitant]
  16. AMITRIPTYLINE HCL [Concomitant]
  17. OXYBUTYNIN [Concomitant]

REACTIONS (8)
  - NAUSEA [None]
  - BACK PAIN [None]
  - DISCOMFORT [None]
  - ANXIETY [None]
  - DYSPNOEA [None]
  - CHEST PAIN [None]
  - INFUSION RELATED REACTION [None]
  - VOMITING [None]
